FAERS Safety Report 19868480 (Version 2)
Quarter: 2021Q3

REPORT INFORMATION
  Report Type: Report from Study
  Country: US (occurrence: US)
  Receive Date: 20210921
  Receipt Date: 20210923
  Transmission Date: 20211014
  Serious: Yes (Death, Other)
  Sender: FDA-Public Use
  Company Number: NVSC2021US212273

PATIENT
  Age: 6 Month
  Sex: Female
  Weight: 7.16 kg

DRUGS (2)
  1. MEKINIST [Suspect]
     Active Substance: TRAMETINIB DIMETHYL SULFOXIDE
     Indication: NOONAN SYNDROME
  2. MEKINIST [Suspect]
     Active Substance: TRAMETINIB DIMETHYL SULFOXIDE
     Indication: HYPERTROPHIC CARDIOMYOPATHY
     Dosage: 0.11 MG (0.025 MG/KG, ROUTE OF ADMINISTRATION: NJ TUBE)
     Route: 065
     Dates: start: 20210619, end: 20210720

REACTIONS (2)
  - Cardiac function disturbance postoperative [Fatal]
  - Arrhythmia [Unknown]

NARRATIVE: CASE EVENT DATE: 20210720
